FAERS Safety Report 16878323 (Version 1)
Quarter: 2019Q4

REPORT INFORMATION
  Report Type: Report from Study
  Country: US (occurrence: US)
  Receive Date: 20191002
  Receipt Date: 20191002
  Transmission Date: 20200122
  Serious: Yes (Hospitalization)
  Sender: FDA-Public Use
  Company Number: US-EISAI MEDICAL RESEARCH-EC-2019-055828

PATIENT
  Age: 69 Year
  Sex: Male
  Weight: 79.3 kg

DRUGS (2)
  1. LENVIMA [Suspect]
     Active Substance: LENVATINIB
     Indication: HEPATOCELLULAR CARCINOMA
     Route: 048
     Dates: start: 20190419, end: 2019
  2. LENVIMA [Suspect]
     Active Substance: LENVATINIB
     Indication: NON-HODGKIN^S LYMPHOMA

REACTIONS (9)
  - Blood pressure increased [Unknown]
  - Dizziness [Unknown]
  - Weight decreased [Unknown]
  - Fall [Unknown]
  - Balance disorder [Unknown]
  - Irritability [Unknown]
  - Skin abrasion [Unknown]
  - Fatigue [Unknown]
  - Cognitive disorder [Unknown]

NARRATIVE: CASE EVENT DATE: 2019
